FAERS Safety Report 10994471 (Version 1)
Quarter: 2015Q2

REPORT INFORMATION
  Report Type: Spontaneous
  Country: US (occurrence: None)
  Receive Date: 20150406
  Receipt Date: 20150406
  Transmission Date: 20150821
  Serious: Yes (Disabling, Other)
  Sender: FDA-Public Use
  Company Number: None

PATIENT
  Age: 66 Year
  Sex: Female
  Weight: 109 kg

DRUGS (18)
  1. WARFARIN [Suspect]
     Active Substance: WARFARIN
     Indication: ATRIAL FIBRILLATION
  2. CALCIUM CARBONATE. [Concomitant]
     Active Substance: CALCIUM CARBONATE
  3. FERROUS SULFATE [Concomitant]
     Active Substance: FERROUS SULFATE\FERROUS SULFATE, DRIED
  4. ROBITUSSIN DM [Concomitant]
     Active Substance: DEXTROMETHORPHAN HYDROBROMIDE\GUAIFENESIN
  5. LIDOCAINE PATCH [Concomitant]
     Active Substance: LIDOCAINE
  6. ACETAMINOPHEN. [Concomitant]
     Active Substance: ACETAMINOPHEN
  7. ATORAVASTATIN [Concomitant]
     Active Substance: ATORVASTATIN
  8. FUROSEMIDE. [Concomitant]
     Active Substance: FUROSEMIDE
  9. TACROLIMUS. [Concomitant]
     Active Substance: TACROLIMUS
  10. DILTIAZEM [Concomitant]
     Active Substance: DILTIAZEM
  11. METOPROLOL [Concomitant]
     Active Substance: METOPROLOL
  12. BISACODYL. [Concomitant]
     Active Substance: BISACODYL
  13. MILK OF MAGNESIA [Concomitant]
     Active Substance: MAGNESIUM HYDROXIDE
  14. PREDNISONE. [Concomitant]
     Active Substance: PREDNISONE
  15. MAG-OX [Concomitant]
     Active Substance: MAGNESIUM OXIDE
  16. PRILOSEC [Concomitant]
     Active Substance: OMEPRAZOLE MAGNESIUM
  17. ALBUTEROL NEB [Concomitant]
  18. CELLCEPT [Concomitant]
     Active Substance: MYCOPHENOLATE MOFETIL\MYCOPHENOLATE MOFETIL HYDROCHLORIDE

REACTIONS (7)
  - Skin lesion [None]
  - Secretion discharge [None]
  - Rash [None]
  - Pain of skin [None]
  - Erythema [None]
  - Skin discolouration [None]
  - Skin induration [None]
